FAERS Safety Report 8888601 (Version 1)
Quarter: 2012Q4

REPORT INFORMATION
  Report Type: 
  Country: BR (occurrence: BR)
  Receive Date: 20121106
  Receipt Date: 20121106
  Transmission Date: 20130627
  Serious: Yes (Hospitalization, Other)
  Sender: FDA-Public Use
  Company Number: BR-PFIZER INC-2012272725

PATIENT
  Age: 70 Year
  Sex: Female

DRUGS (1)
  1. XALATAN [Suspect]
     Indication: INTRAOCULAR PRESSURE HIGH
     Dosage: 3 ug (one drop each eye), unspecified frequency
     Route: 047
     Dates: start: 1993

REACTIONS (4)
  - Cataract [Unknown]
  - Glaucoma [Unknown]
  - Optic nerve injury [Unknown]
  - Blindness unilateral [Unknown]
